FAERS Safety Report 4631039-9 (Version None)
Quarter: 2005Q2

REPORT INFORMATION
  Report Type: 
  Country: None (occurrence: None)
  Receive Date: 20050408
  Receipt Date: 20041025
  Transmission Date: 20051028
  Serious: Yes (Death)
  Sender: FDA-Public Use
  Company Number: US-ABBOTT-04P-163-0279298-00

PATIENT
  Age: 56 Year

DRUGS (2)
  1. VALPROIC ACID [Suspect]
     Indication: COMPLETED SUICIDE
     Route: 048
  2. LEXAPRO [Suspect]
     Route: 048

REACTIONS (14)
  - ACIDOSIS [None]
  - APNOEA [None]
  - ATRIAL FIBRILLATION [None]
  - BRAIN DEATH [None]
  - CARDIO-RESPIRATORY ARREST [None]
  - COMA [None]
  - COMPLETED SUICIDE [None]
  - HYPOTENSION [None]
  - MULTIPLE DRUG OVERDOSE [None]
  - OVERDOSE [None]
  - PNEUMONIA ASPIRATION [None]
  - RENAL FAILURE ACUTE [None]
  - UNRESPONSIVE TO PAIN STIMULI [None]
  - VOMITING [None]
